FAERS Safety Report 18678966 (Version 1)
Quarter: 2020Q4

REPORT INFORMATION
  Report Type: Spontaneous
  Country: NL (occurrence: NL)
  Receive Date: 20201229
  Receipt Date: 20201229
  Transmission Date: 20210114
  Serious: Yes (Life-Threatening, Other)
  Sender: FDA-Public Use
  Company Number: NL-MYLANLABS-2020M1104366

PATIENT
  Age: 56 Year
  Sex: Male

DRUGS (2)
  1. TADALAFIL. [Suspect]
     Active Substance: TADALAFIL
     Indication: PRODUCT USED FOR UNKNOWN INDICATION
     Dosage: AS REQUIRED ONCE DAILY 1 TABLET
     Route: 065
     Dates: start: 20201117, end: 20201118
  2. ABILIFY [Suspect]
     Active Substance: ARIPIPRAZOLE
     Indication: BRAIN CONTUSION
     Dosage: 15 MILLIGRAM DAILY; FOR 31 YEARS
     Route: 065

REACTIONS (11)
  - Feeling drunk [Unknown]
  - Drug ineffective [Unknown]
  - Product use in unapproved indication [Unknown]
  - Extrasystoles [Unknown]
  - Syncope [Unknown]
  - Fear of death [Unknown]
  - Erectile dysfunction [Unknown]
  - Hypotension [Unknown]
  - Pain [Unknown]
  - Headache [Unknown]
  - Delirium [Unknown]

NARRATIVE: CASE EVENT DATE: 20201117
